FAERS Safety Report 17912545 (Version 1)
Quarter: 2020Q2

REPORT INFORMATION
  Report Type: Spontaneous
  Country: CN (occurrence: CN)
  Receive Date: 20200618
  Receipt Date: 20200618
  Transmission Date: 20200714
  Serious: Yes (Hospitalization, Other)
  Sender: FDA-Public Use
  Company Number: CN-PFIZER INC-2020234942

PATIENT
  Age: 9 Year
  Sex: Male
  Weight: 34 kg

DRUGS (1)
  1. SOLU-MEDROL [Suspect]
     Active Substance: METHYLPREDNISOLONE SODIUM SUCCINATE
     Indication: PLATELET COUNT DECREASED
     Dosage: 34 MG, 2X/DAY
     Route: 041
     Dates: start: 20200527, end: 20200531

REACTIONS (3)
  - Intraocular pressure increased [Recovering/Resolving]
  - Exophthalmos [Recovering/Resolving]
  - Optic disc haemorrhage [Recovering/Resolving]

NARRATIVE: CASE EVENT DATE: 20200601
